FAERS Safety Report 4387540-9 (Version None)
Quarter: 2004Q2

REPORT INFORMATION
  Report Type: 
  Country: None (occurrence: None)
  Receive Date: 20040630
  Receipt Date: 20040505
  Transmission Date: 20050107
  Serious: No
  Sender: FDA-Public Use
  Company Number: US-GLAXOSMITHKLINE-A0509762A

PATIENT
  Age: 64 Year
  Sex: Female
  Weight: 48.2 kg

DRUGS (5)
  1. ADVAIR HFA [Suspect]
     Indication: ASTHMA
     Dosage: 1PUFF TWICE PER DAY
     Route: 055
     Dates: start: 20040317, end: 20040420
  2. CALCIUM [Concomitant]
  3. VITAMIN E [Concomitant]
  4. FOLATE [Concomitant]
  5. ATROVENT [Concomitant]

REACTIONS (1)
  - SWOLLEN TONGUE [None]
